FAERS Safety Report 15587480 (Version 1)
Quarter: 2018Q4

REPORT INFORMATION
  Report Type: Spontaneous
  Country: DE (occurrence: DE)
  Receive Date: 20181105
  Receipt Date: 20181105
  Transmission Date: 20190205
  Serious: Yes (Other)
  Sender: FDA-Public Use
  Company Number: DE-BAYER-2017-229084

PATIENT
  Age: 28 Year
  Sex: Female

DRUGS (1)
  1. JAYDESS [Suspect]
     Active Substance: LEVONORGESTREL
     Indication: CONTRACEPTION
     Dosage: UNK
     Route: 015
     Dates: start: 20170321

REACTIONS (5)
  - Device expulsion [None]
  - Pregnancy with contraceptive device [None]
  - Gestational hypertension [None]
  - Gestational diabetes [None]
  - Drug ineffective [None]

NARRATIVE: CASE EVENT DATE: 201710
